FAERS Safety Report 13034454 (Version 2)
Quarter: 2016Q4

REPORT INFORMATION
  Report Type: Spontaneous
  Country: PL (occurrence: PL)
  Receive Date: 20161216
  Receipt Date: 20161227
  Transmission Date: 20170207
  Serious: No
  Sender: FDA-Public Use
  Company Number: PL-JNJFOC-20161212633

PATIENT
  Age: 34 Year
  Sex: Male

DRUGS (1)
  1. RISPOLEPT [Suspect]
     Active Substance: RISPERIDONE
     Indication: SCHIZOPHRENIA
     Route: 048

REACTIONS (3)
  - Mood altered [Recovered/Resolved]
  - Decreased activity [Recovered/Resolved]
  - Depression [Recovered/Resolved]
